FAERS Safety Report 12632715 (Version 2)
Quarter: 2016Q3

REPORT INFORMATION
  Report Type: Spontaneous
  Country: US (occurrence: US)
  Receive Date: 20160808
  Receipt Date: 20160808
  Transmission Date: 20161109
  Serious: No
  Sender: FDA-Public Use
  Company Number: US-BEH-2015056592

PATIENT
  Sex: Female
  Weight: 28 kg

DRUGS (43)
  1. ZOVIRAX [Concomitant]
     Active Substance: ACYCLOVIR
  2. LACRI-LUBE [Concomitant]
  3. RISPERIDONE. [Concomitant]
     Active Substance: RISPERIDONE
  4. METHOTREXATE. [Concomitant]
     Active Substance: METHOTREXATE
  5. NASONEX [Concomitant]
     Active Substance: MOMETASONE FUROATE
  6. TOBRAMYCIN. [Concomitant]
     Active Substance: TOBRAMYCIN
  7. ROBINUL [Concomitant]
     Active Substance: GLYCOPYRROLATE
  8. MAALOX ANTACID [Concomitant]
     Active Substance: ALUMINUM HYDROXIDE\DIMETHICONE\MAGNESIUM HYDROXIDE
  9. CHILD^S BENADRYL [Concomitant]
  10. EPINEPHRINE. [Concomitant]
     Active Substance: EPINEPHRINE
  11. XYZAL [Concomitant]
     Active Substance: LEVOCETIRIZINE DIHYDROCHLORIDE
  12. ACETIC ACID. [Concomitant]
     Active Substance: ACETIC ACID
  13. FLOXIN [Concomitant]
     Active Substance: OFLOXACIN
  14. DIPHENHYDRAMINE. [Concomitant]
     Active Substance: DIPHENHYDRAMINE
  15. ATROVENT [Concomitant]
     Active Substance: IPRATROPIUM BROMIDE
  16. SINGULAIR [Concomitant]
     Active Substance: MONTELUKAST SODIUM
  17. ATROPINE. [Concomitant]
     Active Substance: ATROPINE
  18. BISACODYL. [Concomitant]
     Active Substance: BISACODYL
  19. ATROVENT [Concomitant]
     Active Substance: IPRATROPIUM BROMIDE
  20. UNSPECIFIED EYE DROPS [Concomitant]
     Active Substance: UNSPECIFIED INGREDIENT
  21. L-M-X [Concomitant]
  22. ACETAMINOPHEN. [Concomitant]
     Active Substance: ACETAMINOPHEN
  23. FOLIC ACID. [Concomitant]
     Active Substance: FOLIC ACID
  24. NYSTATIN. [Concomitant]
     Active Substance: NYSTATIN
  25. PULMICORT TURBUHALER [Concomitant]
     Active Substance: BUDESONIDE
  26. PROBIOTIC [Concomitant]
     Active Substance: PROBIOTICS NOS
  27. ARTIFICIAL TEARS [Concomitant]
     Active Substance: GLYCERIN\HYPROMELLOSES\POLYETHYLENE GLYCOL 400
  28. FLUORIDE [Concomitant]
     Active Substance: SODIUM FLUORIDE
  29. MUPIROCIN. [Concomitant]
     Active Substance: MUPIROCIN
  30. HYDROCORTISONE. [Concomitant]
     Active Substance: HYDROCORTISONE
  31. EPIPEN [Concomitant]
     Active Substance: EPINEPHRINE
  32. AUGMENTIN [Concomitant]
     Active Substance: AMOXICILLIN\CLAVULANATE POTASSIUM
  33. CLONAZEPAM. [Concomitant]
     Active Substance: CLONAZEPAM
  34. OCEAN SALINE NASAL SPRAY [Concomitant]
     Active Substance: SODIUM CHLORIDE
     Dosage: SPRAY
  35. PREVACID [Concomitant]
     Active Substance: LANSOPRAZOLE
  36. HIZENTRA [Suspect]
     Active Substance: HUMAN IMMUNOGLOBULIN G
     Indication: IMMUNODEFICIENCY COMMON VARIABLE
     Route: 058
  37. BACLOFEN. [Concomitant]
     Active Substance: BACLOFEN
  38. REFRESH LACRI-LUBE [Concomitant]
     Active Substance: MINERAL OIL\PETROLATUM
  39. VALIUM [Concomitant]
     Active Substance: DIAZEPAM
  40. MIRALAX [Concomitant]
     Active Substance: POLYETHYLENE GLYCOL 3350
  41. XOPENEX [Concomitant]
     Active Substance: LEVALBUTEROL HYDROCHLORIDE
  42. ZINC [Concomitant]
     Active Substance: ZINC\ZINC CHLORIDE
  43. GLYCERIN. [Concomitant]
     Active Substance: GLYCERIN

REACTIONS (1)
  - Urinary tract infection [Unknown]
